FAERS Safety Report 14969386 (Version 4)
Quarter: 2022Q3

REPORT INFORMATION
  Report Type: Report from Study
  Country: US (occurrence: US)
  Receive Date: 20180604
  Receipt Date: 20220702
  Transmission Date: 20221027
  Serious: Yes (Hospitalization, Other)
  Sender: FDA-Public Use
  Company Number: US-SHIRE-US201820535

PATIENT
  Age: 73 Year
  Sex: Female

DRUGS (1)
  1. HUMAN IMMUNOGLOBULIN G [Suspect]
     Active Substance: HUMAN IMMUNOGLOBULIN G
     Indication: Primary immunodeficiency syndrome
     Dosage: 60 GRAM
     Route: 042

REACTIONS (8)
  - Lung disorder [Unknown]
  - Infection [Unknown]
  - Abdominal discomfort [Unknown]
  - Bronchiectasis [Recovering/Resolving]
  - Tuberculosis [Unknown]
  - Gastrointestinal disorder [Unknown]
  - Malaise [Recovering/Resolving]
  - Headache [Recovering/Resolving]

NARRATIVE: CASE EVENT DATE: 20210212
